FAERS Safety Report 7295466-6 (Version None)
Quarter: 2011Q1

REPORT INFORMATION
  Report Type: 
  Country: None (occurrence: None)
  Receive Date: 20110216
  Receipt Date: 20110213
  Transmission Date: 20110831
  Serious: Yes (Hospitalization)
  Sender: FDA-Public Use
  Company Number: US-PFIZER INC-2011031856

PATIENT
  Sex: Male
  Weight: 81.6 kg

DRUGS (2)
  1. ADVIL [Suspect]
     Indication: HEADACHE
     Dosage: UNK, AS NEEDED
     Route: 065
     Dates: start: 20110213
  2. ADVIL [Suspect]
     Indication: TOOTHACHE
     Dosage: UNK, AS NEEDED
     Route: 065

REACTIONS (1)
  - SWELLING FACE [None]
